FAERS Safety Report 10461063 (Version 1)
Quarter: 2014Q2

REPORT INFORMATION
  Report Type: Spontaneous
  Country: AL (occurrence: None)
  Receive Date: 20140505
  Receipt Date: 20140505
  Transmission Date: 20141212
  Serious: Yes (Other)
  Sender: FDA-Public Use
  Company Number: ALB-005-14-AT

PATIENT
  Sex: 0

DRUGS (1)
  1. ALBUNORM [Suspect]
     Indication: PRODUCT USED FOR UNKNOWN INDICATION

REACTIONS (5)
  - Chills [None]
  - Pyrexia [None]
  - White blood cell count decreased [None]
  - Anaemia [None]
  - Infusion related reaction [None]
